FAERS Safety Report 20436939 (Version 1)
Quarter: 2022Q1

REPORT INFORMATION
  Report Type: Spontaneous
  Country: US (occurrence: US)
  Receive Date: 20220207
  Receipt Date: 20220207
  Transmission Date: 20220423
  Serious: No
  Sender: FDA-Public Use
  Company Number: US-SA-SAC20220128001443

PATIENT
  Sex: Female

DRUGS (8)
  1. AUBAGIO [Suspect]
     Active Substance: TERIFLUNOMIDE
     Indication: Multiple sclerosis
     Dosage: 14 MG, QD
     Route: 048
     Dates: start: 201605
  2. TOPIRAMATE [Concomitant]
     Active Substance: TOPIRAMATE
  3. SIMVASTATIN [Concomitant]
     Active Substance: SIMVASTATIN
  4. HYDROXYZINE HYDROCHLORIDE [Concomitant]
     Active Substance: HYDROXYZINE HYDROCHLORIDE
  5. LISINOPRIL [Concomitant]
     Active Substance: LISINOPRIL
  6. SERTRALINE HYDROCHLORIDE [Concomitant]
     Active Substance: SERTRALINE HYDROCHLORIDE
  7. DUPIXENT [Concomitant]
     Active Substance: DUPILUMAB
  8. MESALAMINE [Concomitant]
     Active Substance: MESALAMINE

REACTIONS (2)
  - Catheter site erythema [Unknown]
  - Catheter site eczema [Unknown]
